FAERS Safety Report 16761092 (Version 1)
Quarter: 2019Q3

REPORT INFORMATION
  Report Type: Spontaneous
  Country: US (occurrence: US)
  Receive Date: 20190830
  Receipt Date: 20190830
  Transmission Date: 20191005
  Serious: No
  Sender: FDA-Public Use
  Company Number: US-ANIPHARMA-2018-US-017312

PATIENT
  Age: 66 Year
  Sex: Female

DRUGS (3)
  1. LETROZOLE. [Suspect]
     Active Substance: LETROZOLE
     Dosage: 2.5MG DAILY
     Route: 048
     Dates: start: 2018, end: 2018
  2. TAMOXIFEN [Suspect]
     Active Substance: TAMOXIFEN
     Route: 048
  3. ARIMIDEX [Suspect]
     Active Substance: ANASTROZOLE
     Indication: BREAST CANCER
     Dosage: 1MG DAILY
     Route: 048
     Dates: start: 2017, end: 2017

REACTIONS (3)
  - Bone pain [Unknown]
  - Neuropathy peripheral [Unknown]
  - Insomnia [Recovered/Resolved]

NARRATIVE: CASE EVENT DATE: 2017
